FAERS Safety Report 16950228 (Version 2)
Quarter: 2019Q4

REPORT INFORMATION
  Report Type: Spontaneous
  Country: US (occurrence: US)
  Receive Date: 20191023
  Receipt Date: 20191203
  Transmission Date: 20200122
  Serious: No
  Sender: FDA-Public Use
  Company Number: US-PFIZER INC-2019452590

PATIENT
  Age: 31 Year
  Sex: Female
  Weight: 52.16 kg

DRUGS (1)
  1. ZYVOX [Suspect]
     Active Substance: LINEZOLID
     Dosage: 600 MG, 2X/DAY (BID)

REACTIONS (7)
  - Weight increased [Unknown]
  - Drug ineffective [Unknown]
  - Product use issue [Unknown]
  - Food craving [Unknown]
  - Product storage error [Unknown]
  - Off label use [Unknown]
  - Poor quality product administered [Unknown]
